FAERS Safety Report 12440015 (Version 1)
Quarter: 2016Q2

REPORT INFORMATION
  Report Type: Spontaneous
  Country: US (occurrence: US)
  Receive Date: 20160606
  Receipt Date: 20160606
  Transmission Date: 20160815
  Serious: No
  Sender: FDA-Public Use
  Company Number: US-AMGEN-USASP2016060494

PATIENT
  Age: 72 Year
  Sex: Female

DRUGS (21)
  1. GENTAMICIN. [Concomitant]
     Active Substance: GENTAMICIN
  2. AMOXICILLIN. [Concomitant]
     Active Substance: AMOXICILLIN
  3. BYSTOLIC [Concomitant]
     Active Substance: NEBIVOLOL HYDROCHLORIDE
  4. SEROQUEL [Concomitant]
     Active Substance: QUETIAPINE FUMARATE
  5. CYMBALTA [Concomitant]
     Active Substance: DULOXETINE HYDROCHLORIDE
  6. MURO 128 [Concomitant]
     Active Substance: SODIUM CHLORIDE
  7. LIDOCAINE. [Concomitant]
     Active Substance: LIDOCAINE
  8. SYNTHROID [Concomitant]
     Active Substance: LEVOTHYROXINE SODIUM
  9. DIALYVITE [Concomitant]
     Active Substance: ASCORBIC ACID\BIOTIN\CALCIUM PANTOTHENATE\COBALAMIN\FOLIC ACID\NIACINAMIDE\PYRIDOXINE HYDROCHLORIDE\RIBOFLAVIN\THIAMINE MONONITRATE
  10. CLARITIN [Concomitant]
     Active Substance: LORATADINE
  11. ZOFRAN [Concomitant]
     Active Substance: ONDANSETRON HYDROCHLORIDE
  12. TOBRAMYCIN. [Concomitant]
     Active Substance: TOBRAMYCIN
  13. LATANOPROST. [Concomitant]
     Active Substance: LATANOPROST
  14. IRON [Concomitant]
     Active Substance: IRON
  15. RENVELA [Concomitant]
     Active Substance: SEVELAMER CARBONATE
  16. NEOMYCIN [Concomitant]
     Active Substance: NEOMYCIN
  17. VITAMIN D3 [Concomitant]
     Active Substance: CHOLECALCIFEROL
  18. ARANESP [Suspect]
     Active Substance: DARBEPOETIN ALFA
     Indication: NEPHROGENIC ANAEMIA
     Dosage: UNK, UNK
     Route: 065
     Dates: start: 20160506
  19. EPOGEN [Suspect]
     Active Substance: ERYTHROPOIETIN
     Indication: PRODUCT USED FOR UNKNOWN INDICATION
     Route: 065
  20. OMEGA PLUS [Concomitant]
  21. XANAX [Concomitant]
     Active Substance: ALPRAZOLAM

REACTIONS (1)
  - Diplopia [Unknown]

NARRATIVE: CASE EVENT DATE: 20160507
